FAERS Safety Report 22660326 (Version 1)
Quarter: 2023Q2

REPORT INFORMATION
  Report Type: Spontaneous
  Country: GB (occurrence: GB)
  Receive Date: 20230630
  Receipt Date: 20230630
  Transmission Date: 20230721
  Serious: No
  Sender: FDA-Public Use
  Company Number: GB-JAZZ PHARMACEUTICALS-2023-GB-013674

PATIENT
  Age: 16 Year
  Sex: Male

DRUGS (3)
  1. EPIDIOLEX [Suspect]
     Active Substance: CANNABIDIOL
     Indication: Lennox-Gastaut syndrome
     Dosage: UNK
  2. FLUFENAMIC ACID [Suspect]
     Active Substance: FLUFENAMIC ACID
     Indication: Seizure
     Dosage: 0.5 MG/KG/DAY
  3. CLOBAZAM [Suspect]
     Active Substance: CLOBAZAM
     Indication: Seizure

REACTIONS (1)
  - Decreased appetite [Unknown]
